FAERS Safety Report 4298121-X (Version None)
Quarter: 2004Q1

REPORT INFORMATION
  Report Type: 
  Country: None (occurrence: None)
  Receive Date: 20040218
  Receipt Date: 20030228
  Transmission Date: 20041129
  Serious: Yes (Other)
  Sender: FDA-Public Use
  Company Number: US-BRISTOL-MYERS SQUIBB COMPANY-12198305

PATIENT
  Age: 51 Year
  Sex: Female
  Weight: 63 kg

DRUGS (2)
  1. STADOL [Suspect]
     Indication: MIGRAINE
     Dosage: BEGAN APPROX. 1.5 YRS AGO. STARTED WITH 1 BOTTLE Q 2 MONTHS + NOW USING 3 BOTTLES Q MONTH.
     Route: 045
  2. AMBIEN [Concomitant]

REACTIONS (1)
  - DEPENDENCE [None]
